FAERS Safety Report 9195954 (Version 2)
Quarter: 2013Q2

REPORT INFORMATION
  Report Type: Report from Study
  Country: CA (occurrence: CA)
  Receive Date: 20130328
  Receipt Date: 20130415
  Transmission Date: 20140414
  Serious: Yes (Hospitalization)
  Sender: FDA-Public Use
  Company Number: CA-JNJFOC-20130313390

PATIENT
  Age: 37 Year
  Sex: Female
  Weight: 54 kg

DRUGS (6)
  1. REMICADE [Suspect]
     Indication: CROHN^S DISEASE
     Route: 042
     Dates: start: 20130307
  2. TYLENOL NO 3 [Suspect]
     Indication: PRODUCT USED FOR UNKNOWN INDICATION
     Route: 065
  3. CALCIUM [Concomitant]
     Dosage: UNITS: MG
     Route: 065
  4. SYNTHROID [Concomitant]
     Dosage: UNITS :MG
     Route: 065
  5. IV STEROIDS [Concomitant]
     Dosage: UNITS:MG
     Route: 042
  6. VITAMIN  D [Concomitant]
     Dosage: UNITS: MG
     Route: 065

REACTIONS (1)
  - Colectomy [Recovering/Resolving]
